FAERS Safety Report 6538798-9 (Version None)
Quarter: 2010Q1

REPORT INFORMATION
  Report Type: 
  Country: None (occurrence: None)
  Receive Date: 20100114
  Receipt Date: 20100114
  Transmission Date: 20100710
  Serious: Yes (Other)
  Sender: FDA-Public Use
  Company Number: None

PATIENT
  Age: 19 Year
  Sex: Male
  Weight: 79.3795 kg

DRUGS (1)
  1. SEROQUEL [Suspect]
     Indication: INSOMNIA
     Dosage: 300,G - NEVER DID ONCE AT NIGHT N EVER PO, 150-I ONLY DID HALF THE DOSE PO ABOUT 3 TIMES
     Route: 048

REACTIONS (8)
  - ALTERED VISUAL DEPTH PERCEPTION [None]
  - FEAR [None]
  - FEELING ABNORMAL [None]
  - HEART RATE DECREASED [None]
  - HYPOTENSION [None]
  - IMPAIRED DRIVING ABILITY [None]
  - LOSS OF CONSCIOUSNESS [None]
  - SPEECH DISORDER [None]
